FAERS Safety Report 25387859 (Version 2)
Quarter: 2025Q3

REPORT INFORMATION
  Report Type: Report from Study
  Country: US (occurrence: US)
  Receive Date: 20250603
  Receipt Date: 20250825
  Transmission Date: 20251020
  Serious: No
  Sender: ACADIA PHARMACEUTICALS
  Company Number: US-ACADIA PHARMACEUTICALS INC.-ACA-2025-TRF-006348

PATIENT
  Sex: Female

DRUGS (1)
  1. DAYBUE [Suspect]
     Active Substance: TROFINETIDE
     Indication: Rett syndrome
     Dosage: 40 MILLILITER, BID

REACTIONS (5)
  - Weight fluctuation [Not Recovered/Not Resolved]
  - Gastroenteritis [Recovered/Resolved]
  - Illness [Recovered/Resolved]
  - Diarrhoea [Not Recovered/Not Resolved]
  - Product dose omission issue [Recovered/Resolved]
